FAERS Safety Report 14431540 (Version 1)
Quarter: 2018Q1

REPORT INFORMATION
  Report Type: Spontaneous
  Country: US (occurrence: US)
  Receive Date: 20180124
  Receipt Date: 20180124
  Transmission Date: 20180509
  Serious: Yes (Death, Hospitalization, Other)
  Sender: FDA-Public Use
  Company Number: US-ROCHE-2032058

PATIENT
  Age: 9 Year
  Sex: Female

DRUGS (2)
  1. ACTEMRA [Suspect]
     Active Substance: TOCILIZUMAB
     Indication: CYTOKINE RELEASE SYNDROME
     Route: 065
     Dates: start: 20140425
  2. TISAGENLECLEUCEL. [Suspect]
     Active Substance: TISAGENLECLEUCEL
     Indication: ACUTE LYMPHOCYTIC LEUKAEMIA
     Dosage: UNCERTAINTY
     Route: 065

REACTIONS (10)
  - Cardio-respiratory arrest [Recovered/Resolved]
  - Device related infection [Recovered/Resolved]
  - Disease progression [Fatal]
  - Neutropenia [Recovered/Resolved]
  - Lung infection [Recovered/Resolved]
  - Hypoxia [Recovered/Resolved]
  - White blood cell count decreased [Recovered/Resolved]
  - Platelet count decreased [Unknown]
  - Lymphopenia [Unknown]
  - Hypokalaemia [Recovered/Resolved]

NARRATIVE: CASE EVENT DATE: 20140512
